FAERS Safety Report 24650462 (Version 1)
Quarter: 2024Q4

REPORT INFORMATION
  Report Type: Spontaneous
  Country: US (occurrence: US)
  Receive Date: 20241122
  Receipt Date: 20241122
  Transmission Date: 20250114
  Serious: No
  Sender: CIPLA
  Company Number: US-CIPLA LTD.-2024US03485

PATIENT

DRUGS (1)
  1. AMLODIPINE [Suspect]
     Active Substance: AMLODIPINE BESYLATE
     Indication: Blood pressure abnormal
     Dosage: 5 MILLIGRAM, QD
     Route: 048
     Dates: start: 20230922, end: 20231019

REACTIONS (3)
  - Blood pressure increased [Recovered/Resolved]
  - Product substitution issue [Unknown]
  - Product formulation issue [Unknown]

NARRATIVE: CASE EVENT DATE: 20230926
